FAERS Safety Report 9157860 (Version 1)
Quarter: 2013Q1

REPORT INFORMATION
  Report Type: Report from Study
  Country: CA (occurrence: CA)
  Receive Date: 20130312
  Receipt Date: 20130312
  Transmission Date: 20140127
  Serious: Yes (Other)
  Sender: FDA-Public Use
  Company Number: CA-ABBOTT-13P-028-1054451-00

PATIENT
  Sex: Female
  Weight: 83 kg

DRUGS (7)
  1. HUMIRA [Suspect]
     Indication: RHEUMATOID ARTHRITIS
     Route: 058
     Dates: start: 20120417
  2. HUMIRA [Suspect]
     Dates: start: 201209
  3. HUMIRA [Suspect]
     Route: 058
     Dates: start: 20130219
  4. PLAQUENIL [Concomitant]
     Indication: PRODUCT USED FOR UNKNOWN INDICATION
     Dosage: DAILY
  5. METHOTREXATE [Concomitant]
     Indication: PRODUCT USED FOR UNKNOWN INDICATION
     Dosage: WEEKLY
  6. VITAMIN D [Concomitant]
     Indication: PRODUCT USED FOR UNKNOWN INDICATION
  7. DIDROCAL KIT [Concomitant]
     Indication: PRODUCT USED FOR UNKNOWN INDICATION

REACTIONS (2)
  - Ovarian cyst [Unknown]
  - Pelvic pain [Unknown]
